FAERS Safety Report 23029038 (Version 7)
Quarter: 2023Q4

REPORT INFORMATION
  Report Type: Report from Study
  Country: CN (occurrence: CN)
  Receive Date: 20231004
  Receipt Date: 20231127
  Transmission Date: 20240110
  Serious: Yes (Life-Threatening, Other)
  Sender: FDA-Public Use
  Company Number: CN-FOSUNKITE-FOSUNKITE-20230932

PATIENT
  Age: 24 Year
  Sex: Female
  Weight: 55 kg

DRUGS (64)
  1. BREXUCABTAGENE AUTOLEUCEL [Suspect]
     Active Substance: BREXUCABTAGENE AUTOLEUCEL
     Indication: Acute lymphocytic leukaemia
     Dosage: 68 ML, SINGLE
     Route: 041
  2. FLUDARABINE [Suspect]
     Active Substance: FLUDARABINE PHOSPHATE
     Indication: Bone marrow conditioning regimen
     Dosage: 39.5 MG, QD
     Route: 041
     Dates: start: 20230916, end: 20230918
  3. CYCLOPHOSPHAMIDE [Suspect]
     Active Substance: CYCLOPHOSPHAMIDE
     Indication: Bone marrow conditioning regimen
     Dosage: 0.47 G, QD
     Route: 041
     Dates: start: 20230812, end: 20230813
  4. CYCLOPHOSPHAMIDE [Suspect]
     Active Substance: CYCLOPHOSPHAMIDE
     Dosage: 470MG, D1-3
     Route: 041
     Dates: start: 20230811
  5. CYCLOPHOSPHAMIDE [Suspect]
     Active Substance: CYCLOPHOSPHAMIDE
     Dosage: 1.4 G, SINGLE
     Route: 041
     Dates: start: 20230918, end: 20230918
  6. VINCRISTINE SULFATE [Concomitant]
     Active Substance: VINCRISTINE SULFATE
     Indication: Chemotherapy
     Dosage: 2 MG, QD
     Route: 041
     Dates: start: 20230814, end: 20230814
  7. VINCRISTINE SULFATE [Concomitant]
     Active Substance: VINCRISTINE SULFATE
     Dosage: 2MG, D4, D11
     Route: 041
     Dates: start: 20230811
  8. DOXORUBICIN HYDROCHLORIDE [Concomitant]
     Active Substance: DOXORUBICIN HYDROCHLORIDE
     Indication: Chemotherapy
     Dosage: 79 MG, QD
     Route: 041
     Dates: start: 20230814, end: 20230814
  9. DOXORUBICIN HYDROCHLORIDE [Concomitant]
     Active Substance: DOXORUBICIN HYDROCHLORIDE
     Dosage: 79 MG, QD
     Route: 041
     Dates: start: 20230811
  10. DEXAMETHASONE SODIUM PHOSPHATE [Concomitant]
     Active Substance: DEXAMETHASONE SODIUM PHOSPHATE
     Indication: Chemotherapy
     Dosage: 40 MG, QD (D1-4, D11-14)
     Route: 041
     Dates: start: 20230811, end: 20230811
  11. DEXAMETHASONE SODIUM PHOSPHATE [Concomitant]
     Active Substance: DEXAMETHASONE SODIUM PHOSPHATE
     Indication: Prophylaxis
     Dosage: 2.5 MG, QD
     Route: 050
     Dates: start: 20230824, end: 20230824
  12. DEXAMETHASONE SODIUM PHOSPHATE [Concomitant]
     Active Substance: DEXAMETHASONE SODIUM PHOSPHATE
     Dosage: 5 MG, QD
     Route: 050
     Dates: start: 20230824, end: 20230824
  13. DEXAMETHASONE SODIUM PHOSPHATE [Concomitant]
     Active Substance: DEXAMETHASONE SODIUM PHOSPHATE
     Dosage: 10 MG, Q6H
     Dates: start: 20230929
  14. ENTECAVIR [Concomitant]
     Active Substance: ENTECAVIR
     Indication: Viral hepatitis carrier
     Dosage: 0.5 MG, QD
     Route: 048
     Dates: start: 202210
  15. SODIUM BICARBONATE [Concomitant]
     Active Substance: SODIUM BICARBONATE
     Dosage: 125 ML, QD
     Route: 041
     Dates: start: 20230811, end: 20230816
  16. POTASSIUM CHLORIDE [Concomitant]
     Active Substance: POTASSIUM CHLORIDE
     Indication: Prophylaxis
     Dosage: 15 ML, QD
     Route: 041
     Dates: start: 20230811, end: 20230811
  17. POTASSIUM CHLORIDE [Concomitant]
     Active Substance: POTASSIUM CHLORIDE
     Dosage: 15 ML, QD
     Route: 041
     Dates: start: 20230814, end: 20230814
  18. AZASETRON HYDROCHLORIDE [Concomitant]
     Active Substance: AZASETRON HYDROCHLORIDE
     Indication: Prophylaxis
     Dosage: 10 MG, QD
     Route: 041
     Dates: start: 20230811, end: 20230811
  19. MESNA [Concomitant]
     Active Substance: MESNA
     Indication: Prophylaxis
     Dosage: 0.4 G, BID
     Route: 041
     Dates: start: 20230811, end: 20230811
  20. PANTOPRAZOLE SODIUM ANHYDROUS [Concomitant]
     Active Substance: PANTOPRAZOLE SODIUM ANHYDROUS
     Dosage: 40 MG, QD
     Route: 041
     Dates: start: 20230811, end: 20230811
  21. FUROSEMIDE [Concomitant]
     Active Substance: FUROSEMIDE
     Indication: Diuretic therapy
     Dosage: 20 MG, QD
     Route: 041
     Dates: start: 20231002, end: 20231003
  22. FUROSEMIDE [Concomitant]
     Active Substance: FUROSEMIDE
     Indication: Antiinflammatory therapy
     Dosage: 20 MG, TID
     Route: 041
     Dates: start: 20230918, end: 20230918
  23. FUROSEMIDE [Concomitant]
     Active Substance: FUROSEMIDE
     Dosage: 20 MG, QD
     Route: 041
     Dates: start: 20230930, end: 20230930
  24. FUROSEMIDE [Concomitant]
     Active Substance: FUROSEMIDE
     Dosage: 20 MG, QD
     Route: 041
     Dates: start: 20230811, end: 20230811
  25. AMMONIUM GLYCYRRHIZATE\CYSTEINE [Concomitant]
     Active Substance: AMMONIUM GLYCYRRHIZATE\CYSTEINE
     Dosage: 100 ML, QD
     Route: 041
     Dates: start: 20230811, end: 20230815
  26. ERTAPENEM [Concomitant]
     Active Substance: ERTAPENEM
     Indication: Infection
     Dosage: 1 G, QD
     Route: 041
     Dates: start: 20230811, end: 20230824
  27. MEGESTROL ACETATE [Concomitant]
     Active Substance: MEGESTROL ACETATE
     Dosage: 40 MG, QD
     Route: 048
     Dates: start: 20230825
  28. MEGESTROL ACETATE [Concomitant]
     Active Substance: MEGESTROL ACETATE
     Dosage: 80 MG, QD
     Route: 048
     Dates: start: 20230820, end: 20230824
  29. MEGESTROL ACETATE [Concomitant]
     Active Substance: MEGESTROL ACETATE
     Dosage: 120 MG, QD
     Route: 048
     Dates: start: 20230817, end: 20230819
  30. MEGESTROL ACETATE [Concomitant]
     Active Substance: MEGESTROL ACETATE
     Dosage: 160 MG, QD
     Route: 048
     Dates: start: 20230812, end: 20230816
  31. HEROMBOPAG OLAMINE [Concomitant]
     Dosage: 5 MG, QD
     Route: 048
     Dates: start: 20230813, end: 20230825
  32. SULFAMETHOXAZOLE [Concomitant]
     Active Substance: SULFAMETHOXAZOLE
     Indication: Prophylaxis
     Dosage: 0.48 MG, BID
     Route: 048
     Dates: start: 20230819, end: 20230819
  33. ACYCLOVIR [Concomitant]
     Active Substance: ACYCLOVIR
     Indication: Prophylaxis
     Dosage: 0.4 G, TID
     Route: 048
     Dates: start: 20230819, end: 20230819
  34. PLATELETS [Concomitant]
     Active Substance: HUMAN PLATELET, ALLOGENIC
     Indication: Platelet count decreased
     Dosage: 1 U, QD
     Route: 041
     Dates: start: 20230814, end: 20230814
  35. PLATELETS [Concomitant]
     Active Substance: HUMAN PLATELET, ALLOGENIC
     Dosage: 1 U, QD
     Route: 041
     Dates: start: 20230807, end: 20230807
  36. PLATELETS [Concomitant]
     Active Substance: HUMAN PLATELET, ALLOGENIC
     Dosage: 1 U, QD
     Route: 041
     Dates: start: 20230813, end: 20230813
  37. PLATELETS [Concomitant]
     Active Substance: HUMAN PLATELET, ALLOGENIC
     Dosage: 1 U, QD
     Route: 041
     Dates: start: 20230816, end: 20230816
  38. LORATADINE [Concomitant]
     Active Substance: LORATADINE
     Indication: Prophylaxis
     Dosage: 10 MG, QD
     Route: 048
     Dates: start: 20230807, end: 20230807
  39. LORATADINE [Concomitant]
     Active Substance: LORATADINE
     Dosage: 10 MG, BID
     Route: 048
     Dates: start: 20230814, end: 20230814
  40. LORATADINE [Concomitant]
     Active Substance: LORATADINE
     Dosage: 10 MG, BID
     Route: 048
     Dates: start: 20230816, end: 20230816
  41. LORATADINE [Concomitant]
     Active Substance: LORATADINE
     Dosage: 10 MG, BID
     Route: 048
     Dates: start: 20230929, end: 20230930
  42. LORATADINE [Concomitant]
     Active Substance: LORATADINE
     Dosage: 10 MG, BID
     Route: 048
     Dates: start: 20230922, end: 20230923
  43. LORATADINE [Concomitant]
     Active Substance: LORATADINE
     Dosage: 10 MG, BID
     Route: 048
     Dates: start: 20231002, end: 20231004
  44. HYDROGEN PEROXIDE [Concomitant]
     Active Substance: HYDROGEN PEROXIDE
     Indication: Prophylaxis
     Dosage: 250 ML, S.O.S, GARGLE
     Route: 002
     Dates: start: 20230816, end: 20230816
  45. HUMAN RED BLOOD CELL [Concomitant]
     Active Substance: HUMAN RED BLOOD CELL
     Dosage: 1 U, QD
     Route: 041
     Dates: start: 20230816, end: 20230816
  46. HUMAN RED BLOOD CELL [Concomitant]
     Active Substance: HUMAN RED BLOOD CELL
     Dosage: 0.5 U, QD
     Route: 041
     Dates: start: 20230830, end: 20230830
  47. LIDOCAINE HYDROCHLORIDE [Concomitant]
     Active Substance: DEXTROSE MONOHYDRATE\EPINEPHRINE\EPINEPHRINE BITARTRATE\LIDOCAINE\LIDOCAINE HYDROCHLORIDE\LIDOCAINE
     Indication: Maintenance of anaesthesia
     Dosage: 5 ML, QD
     Route: 050
     Dates: start: 20231001, end: 20231001
  48. LIDOCAINE HYDROCHLORIDE [Concomitant]
     Active Substance: DEXTROSE MONOHYDRATE\EPINEPHRINE\EPINEPHRINE BITARTRATE\LIDOCAINE\LIDOCAINE HYDROCHLORIDE\LIDOCAINE
     Dosage: 5 ML, QD
     Route: 050
     Dates: start: 20230824, end: 20230824
  49. CYTARABINE [Concomitant]
     Active Substance: CYTARABINE
     Indication: Prophylaxis
     Dosage: 50 MG, QD?INTRATHECAL INJECTION
     Route: 050
     Dates: start: 20230824, end: 20230824
  50. METHOTREXATE SODIUM [Concomitant]
     Active Substance: METHOTREXATE SODIUM
     Indication: Prophylaxis
     Dosage: 15 MG, QD?INTRATHECAL INJECTION
     Route: 050
     Dates: start: 20230824, end: 20230824
  51. IBUPROFEN [Concomitant]
     Active Substance: IBUPROFEN
     Indication: Dysmenorrhoea
     Dosage: 0.3 G, PRN
     Route: 048
     Dates: start: 20230910, end: 202309
  52. IBUPROFEN [Concomitant]
     Active Substance: IBUPROFEN
     Indication: Pyrexia
     Dosage: 8 ML, QD
     Route: 048
     Dates: start: 20230824, end: 20230824
  53. MUPIROCIN [Concomitant]
     Active Substance: MUPIROCIN
     Indication: Anal fungal infection
     Dosage: 5 G, PRN
     Route: 003
     Dates: start: 20230828, end: 202309
  54. MUPIROCIN [Concomitant]
     Active Substance: MUPIROCIN
     Dosage: 5 G, PRN
     Route: 003
     Dates: start: 20230825, end: 20230825
  55. EBASTINE [Concomitant]
     Active Substance: EBASTINE
     Indication: Pruritus
     Dosage: 10 MG, QD
     Route: 048
     Dates: start: 20230902, end: 20230921
  56. EBASTINE [Concomitant]
     Active Substance: EBASTINE
     Dosage: 10 MG, QD
     Route: 048
     Dates: start: 20230902
  57. MOMETASONE FUROATE [Concomitant]
     Active Substance: MOMETASONE FUROATE
     Indication: Pruritus
     Dosage: 10 G, PRN
     Route: 003
     Dates: start: 20230903, end: 20230923
  58. FUSIDIC ACID [Concomitant]
     Active Substance: FUSIDIC ACID
     Indication: Skin infection
     Dosage: 10 G, PRN
     Route: 003
     Dates: start: 20230904, end: 202309
  59. PHELLODENDRON AMURENSE [Concomitant]
  60. FAT EMULSION, AMINO ACIDS (17) AND GLUCOSE (11%) [Concomitant]
     Indication: Nutritional supplementation
     Dosage: 1440 ML, QD
     Route: 041
     Dates: start: 20231003, end: 20231008
  61. FAT EMULSION, AMINO ACIDS (17) AND GLUCOSE (11%) [Concomitant]
     Dosage: 1440 ML, QD
     Route: 041
     Dates: start: 20231002, end: 20231002
  62. NEXIUM [Concomitant]
     Active Substance: ESOMEPRAZOLE MAGNESIUM
     Indication: Prophylaxis
     Dosage: 20 MG, QD
     Route: 048
     Dates: start: 20230927, end: 20230927
  63. KAI SAI LU [Concomitant]
     Indication: Constipation
     Dosage: 40 ML
     Dates: start: 20230930, end: 20230930
  64. HEMOSTATIC [Concomitant]
     Indication: Coagulopathy
     Dosage: 1000 MG, QD
     Route: 041
     Dates: start: 20230929, end: 20230929

REACTIONS (4)
  - Pneumonia [Recovered/Resolved]
  - Cytokine release syndrome [Not Recovered/Not Resolved]
  - Myelosuppression [Recovered/Resolved]
  - Infection [Recovered/Resolved]

NARRATIVE: CASE EVENT DATE: 20230825
